FAERS Safety Report 6238076-1 (Version None)
Quarter: 2009Q2

REPORT INFORMATION
  Report Type: 
  Country: None (occurrence: None)
  Receive Date: 20090617
  Receipt Date: 20090610
  Transmission Date: 20091009
  Serious: Yes (Hospitalization)
  Sender: FDA-Public Use
  Company Number: ADR3122009

PATIENT
  Sex: Male

DRUGS (2)
  1. SERTRALINE [Suspect]
     Dosage: 10 DF ORAL
     Route: 048
  2. RISPERDAL [Concomitant]

REACTIONS (2)
  - MALAISE [None]
  - OVERDOSE [None]
